FAERS Safety Report 15163434 (Version 1)
Quarter: 2018Q3

REPORT INFORMATION
  Report Type: Spontaneous
  Country: GB (occurrence: GB)
  Receive Date: 20180719
  Receipt Date: 20180719
  Transmission Date: 20181010
  Serious: Yes (Other)
  Sender: FDA-Public Use
  Company Number: GB-KRKA, D.D., NOVO MESTO-2052373

PATIENT
  Age: 42 Year
  Sex: Female
  Weight: 64 kg

DRUGS (4)
  1. BRUFEN [Concomitant]
     Active Substance: IBUPROFEN
  2. LANSOPRAZOLE. [Suspect]
     Active Substance: LANSOPRAZOLE
     Indication: ABDOMINAL PAIN UPPER
     Dates: start: 20160714, end: 20160717
  3. OMEPRAZOLE. [Suspect]
     Active Substance: OMEPRAZOLE
  4. COCODAMOL [Suspect]
     Active Substance: ACETAMINOPHEN\CODEINE PHOSPHATE

REACTIONS (7)
  - Pain [Unknown]
  - Pruritus [Unknown]
  - Constipation [Unknown]
  - Periorbital oedema [Unknown]
  - Erythema [Unknown]
  - Inflammation [Unknown]
  - Urticaria [Unknown]

NARRATIVE: CASE EVENT DATE: 201607
